FAERS Safety Report 24837851 (Version 1)
Quarter: 2025Q1

REPORT INFORMATION
  Report Type: Spontaneous
  Country: FR (occurrence: FR)
  Receive Date: 20250113
  Receipt Date: 20250113
  Transmission Date: 20250408
  Serious: Yes (Hospitalization, Other)
  Sender: ANI
  Company Number: FR-ANIPHARMA-2025-FR-000005

PATIENT
  Age: 89 Year
  Sex: Female
  Weight: 53 kg

DRUGS (6)
  1. CANDESARTAN CILEXETIL [Suspect]
     Active Substance: CANDESARTAN CILEXETIL
     Indication: Hypertension
     Route: 048
     Dates: end: 20241108
  2. LACTULOSE [Concomitant]
     Active Substance: LACTULOSE
  3. FENOFIBRATE [Concomitant]
     Active Substance: FENOFIBRATE
  4. SOLIFENACIN [Concomitant]
     Active Substance: SOLIFENACIN
  5. ASPIRIN [Concomitant]
     Active Substance: ASPIRIN
  6. NEBIVOLOL [Concomitant]
     Active Substance: NEBIVOLOL

REACTIONS (3)
  - Hyponatraemia [Recovered/Resolved]
  - Inappropriate antidiuretic hormone secretion [Recovered/Resolved]
  - Fall [Unknown]
